FAERS Safety Report 5318461-2 (Version None)
Quarter: 2007Q2

REPORT INFORMATION
  Report Type: 
  Country: None (occurrence: None)
  Receive Date: 20070501
  Receipt Date: 20070419
  Transmission Date: 20071010
  Serious: Yes (Life-Threatening)
  Sender: FDA-Public Use
  Company Number: E2090-00225-SPO-JP

PATIENT
  Age: 51 Year
  Sex: Male

DRUGS (2)
  1. EXCERGAN (ZONISAMIDE) [Suspect]
     Dosage: 200 MG, 2 IN 1 D, ORAL
     Route: 048
  2. UNSPECIFIED [Concomitant]

REACTIONS (1)
  - STEVENS-JOHNSON SYNDROME [None]
